FAERS Safety Report 11746647 (Version 1)
Quarter: 2015Q4

REPORT INFORMATION
  Report Type: Spontaneous
  Country: US (occurrence: US)
  Receive Date: 20151117
  Receipt Date: 20151117
  Transmission Date: 20160304
  Serious: No
  Sender: FDA-Public Use
  Company Number: US-PFIZER INC-2015375017

PATIENT
  Sex: Female

DRUGS (6)
  1. MORPHINE SULFATE. [Suspect]
     Active Substance: MORPHINE SULFATE
     Dosage: 0.5 MG/ML, UNK
  2. BUTORPHANOL [Suspect]
     Active Substance: BUTORPHANOL
     Dosage: 1 MG/ML, UNK
  3. IMITREX [Suspect]
     Active Substance: SUMATRIPTAN\SUMATRIPTAN SUCCINATE
     Dosage: 100 MG, UNK
  4. PROCHLORPERAZINE. [Suspect]
     Active Substance: PROCHLORPERAZINE
     Dosage: 10 MG, UNK
  5. DILAUDID [Suspect]
     Active Substance: HYDROMORPHONE HYDROCHLORIDE
     Dosage: 2 MG, UNK
  6. PERCOCET [Suspect]
     Active Substance: ACETAMINOPHEN\OXYCODONE HYDROCHLORIDE
     Dosage: 10 MG / 325 MG

REACTIONS (1)
  - Drug hypersensitivity [Unknown]
